FAERS Safety Report 24347757 (Version 1)
Quarter: 2024Q3

REPORT INFORMATION
  Report Type: Report from Study
  Country: US (occurrence: US)
  Receive Date: 20240922
  Receipt Date: 20240922
  Transmission Date: 20241017
  Serious: Yes (Hospitalization, Other)
  Sender: ABBVIE
  Company Number: US-ABBVIE-5930003

PATIENT
  Sex: Male

DRUGS (1)
  1. HUMIRA [Suspect]
     Active Substance: ADALIMUMAB
     Indication: Crohn^s disease
     Dosage: DRUG END DATE--2024?CF
     Route: 058
     Dates: start: 20240517

REACTIONS (4)
  - Central venous catheterisation [Unknown]
  - Ostomy bag placement [Unknown]
  - Infection [Unknown]
  - Wound [Unknown]

NARRATIVE: CASE EVENT DATE: 20240101
